FAERS Safety Report 6194212-7 (Version None)
Quarter: 2009Q2

REPORT INFORMATION
  Report Type: 
  Country: None (occurrence: None)
  Receive Date: 20090518
  Receipt Date: 20090512
  Transmission Date: 20091009
  Serious: Yes (Other)
  Sender: FDA-Public Use
  Company Number: DE-BAYER-200920735GPV

PATIENT
  Age: 43 Year
  Sex: Female

DRUGS (1)
  1. SORAFENIB [Suspect]
     Indication: ACUTE MYELOID LEUKAEMIA RECURRENT
     Dosage: TOTAL DAILY DOSE: 800 MG
     Route: 048

REACTIONS (3)
  - NAUSEA [None]
  - PERICARDIAL EFFUSION [None]
  - VOMITING [None]
